FAERS Safety Report 9092478 (Version 1)
Quarter: 2013Q1

REPORT INFORMATION
  Report Type: Spontaneous
  Country: US (occurrence: US)
  Receive Date: 20130131
  Receipt Date: 20130131
  Transmission Date: 20140127
  Serious: Yes (Other)
  Sender: FDA-Public Use
  Company Number: US-ELI_LILLY_AND_COMPANY-US201301007309

PATIENT
  Sex: Female

DRUGS (5)
  1. CYMBALTA [Suspect]
     Indication: SPINAL CORD DISORDER
     Dosage: 60 MG, EACH EVENING
     Dates: start: 2005
  2. TEGRETOL [Concomitant]
     Dosage: 200 MG, TID
  3. ZONEGRAN [Concomitant]
     Dosage: 500 MG, EACH EVENING
  4. ADVAIR [Concomitant]
  5. SINGULAIR [Concomitant]

REACTIONS (4)
  - Anaphylactic reaction [Unknown]
  - Body temperature increased [Unknown]
  - Glossodynia [Unknown]
  - Off label use [Unknown]
